FAERS Safety Report 6444809-1 (Version None)
Quarter: 2009Q4

REPORT INFORMATION
  Report Type: 
  Country: None (occurrence: None)
  Receive Date: 20091118
  Receipt Date: 20091105
  Transmission Date: 20100525
  Serious: Yes (Other)
  Sender: FDA-Public Use
  Company Number: PHHY2009CA48076

PATIENT
  Sex: Male

DRUGS (9)
  1. DIOVAN [Suspect]
     Indication: HYPERTENSION
     Dosage: 160/25 MG, UNK
     Route: 048
     Dates: start: 20080331, end: 20080820
  2. CALCIUM CHANNEL BLOCKERS [Concomitant]
     Dosage: UNK
  3. DIURETICS [Concomitant]
     Dosage: UNK
  4. ACE INHIBITOR NOS [Concomitant]
     Dosage: UNK
  5. BETA BLOCKING AGENTS [Concomitant]
     Dosage: UNK
  6. ADALAT [Concomitant]
     Dosage: 30 DAILY
  7. ASAPHEN [Concomitant]
  8. MONOCOR [Concomitant]
  9. CELEXA [Concomitant]

REACTIONS (1)
  - MYOCARDIAL INFARCTION [None]
